FAERS Safety Report 7092034-6 (Version None)
Quarter: 2010Q4

REPORT INFORMATION
  Report Type: 
  Country: None (occurrence: None)
  Receive Date: 20101109
  Receipt Date: 20080730
  Transmission Date: 20110411
  Serious: No
  Sender: FDA-Public Use
  Company Number: US-KINGPHARMUSA00001-K200800907

PATIENT
  Sex: Female
  Weight: 108.84 kg

DRUGS (4)
  1. CORGARD [Suspect]
     Indication: MIGRAINE
     Dosage: 80 MG, QD
     Route: 048
  2. WELLBUTRIN XL [Concomitant]
     Indication: BIPOLAR DISORDER
     Dosage: UNK, QD
  3. LIPITOR [Concomitant]
     Dosage: UNK, UNK
  4. LAMICTAL [Concomitant]
     Indication: BIPOLAR DISORDER
     Dosage: UNK, QD

REACTIONS (2)
  - ABDOMINAL DISCOMFORT [None]
  - INFLUENZA LIKE ILLNESS [None]
